FAERS Safety Report 7653922-2 (Version None)
Quarter: 2011Q3

REPORT INFORMATION
  Report Type: 
  Country: None (occurrence: None)
  Receive Date: 20110803
  Receipt Date: 20110721
  Transmission Date: 20111222
  Serious: Yes (Hospitalization)
  Sender: FDA-Public Use
  Company Number: US-CELGENEUS-163-21880-11072473

PATIENT
  Sex: Male
  Weight: 66.738 kg

DRUGS (4)
  1. GLYBURIDE [Concomitant]
     Route: 065
  2. REVLIMID [Suspect]
     Indication: MULTIPLE MYELOMA
     Dosage: 10 MILLIGRAM
     Route: 048
     Dates: start: 20091113
  3. METOPROLOL TARTRATE [Concomitant]
     Route: 065
  4. URAXATRAL [Concomitant]
     Route: 065

REACTIONS (3)
  - BLOOD GLUCOSE DECREASED [None]
  - WOUND INFECTION [None]
  - JAW DISORDER [None]
